FAERS Safety Report 4905437-X (Version None)
Quarter: 2006Q1

REPORT INFORMATION
  Report Type: 
  Country: None (occurrence: None)
  Receive Date: 20060208
  Receipt Date: 20060131
  Transmission Date: 20060701
  Serious: Yes (Disabling, Other)
  Sender: FDA-Public Use
  Company Number: GB-MERCK-0602GBR00009

PATIENT
  Age: 73 Year
  Sex: Male
  Weight: 92 kg

DRUGS (4)
  1. ZETIA [Suspect]
     Indication: BLOOD CHOLESTEROL INCREASED
     Route: 048
     Dates: start: 20060111, end: 20060125
  2. IPRATROPIUM BROMIDE [Concomitant]
     Indication: OBSTRUCTIVE AIRWAYS DISORDER
     Route: 055
  3. CANDESARTAN [Concomitant]
     Indication: HYPERTENSION
     Route: 048
     Dates: start: 20051228
  4. DIGOXIN [Concomitant]
     Indication: CARDIAC DISORDER
     Route: 048

REACTIONS (1)
  - GOUT [None]
